FAERS Safety Report 19164879 (Version 1)
Quarter: 2021Q2

REPORT INFORMATION
  Report Type: Spontaneous
  Country: US (occurrence: US)
  Receive Date: 20210421
  Receipt Date: 20210421
  Transmission Date: 20210717
  Serious: No
  Sender: FDA-Public Use
  Company Number: US-PARATEK PHARMACEUTICALS, INC.-2021PTK00018

PATIENT
  Age: 68 Year
  Sex: Male
  Weight: 84.35 kg

DRUGS (8)
  1. NUZYRA [Suspect]
     Active Substance: OMADACYCLINE
     Indication: CELLULITIS STAPHYLOCOCCAL
     Dosage: 450 MG, 1X/DAY
     Route: 048
     Dates: start: 20210220, end: 20210222
  2. RISPERDAL [Concomitant]
     Active Substance: RISPERIDONE
  3. GENERIC WELLBUTRIN [Concomitant]
     Active Substance: BUPROPION HYDROCHLORIDE
  4. CYMBALTA [Concomitant]
     Active Substance: DULOXETINE HYDROCHLORIDE
  5. ^TRIMEQ^ (PRESUMED TRIUMEQ) [Concomitant]
  6. PROBIOTICS [Concomitant]
     Active Substance: PROBIOTICS NOS
  7. UNSPECIFIED ACID REFLUX MEDICATION [Concomitant]
  8. UNSPECIFIED VITAMINS [Concomitant]
     Active Substance: VITAMINS

REACTIONS (10)
  - Rash pruritic [Recovered/Resolved]
  - Discomfort [Not Recovered/Not Resolved]
  - Wound secretion [Recovered/Resolved]
  - Furuncle [Unknown]
  - Rash erythematous [Recovered/Resolved]
  - Scab [Unknown]
  - Hypersensitivity [Recovered/Resolved]
  - Sensitive skin [Recovered/Resolved]
  - Body temperature increased [Recovered/Resolved]
  - Blister [Unknown]

NARRATIVE: CASE EVENT DATE: 2021
